FAERS Safety Report 8688284 (Version 2)
Quarter: 2012Q4

REPORT INFORMATION
  Report Type: 
  Country: US (occurrence: US)
  Receive Date: 20120727
  Receipt Date: 20120926
  Transmission Date: 20130627
  Serious: Yes (Hospitalization, Other)
  Sender: FDA-Public Use
  Company Number: US-ELI_LILLY_AND_COMPANY-US201207006994

PATIENT
  Age: 31 None
  Sex: Female
  Weight: 94.6 kg

DRUGS (10)
  1. EFFIENT [Suspect]
     Indication: STENT PLACEMENT
     Dosage: UNK, unknown
  2. RANEXA [Concomitant]
  3. IMDUR [Concomitant]
  4. NITROSTAT [Concomitant]
  5. LOPRESSOR [Concomitant]
  6. ASA [Concomitant]
  7. TRICOR [Concomitant]
  8. LANTUS [Concomitant]
  9. NOVOLOG [Concomitant]
  10. PRENATAL VITAMINS                  /01549301/ [Concomitant]

REACTIONS (3)
  - Myocardial infarction [Recovered/Resolved]
  - Haemoglobin decreased [Recovered/Resolved]
  - Exposure during pregnancy [Unknown]
